FAERS Safety Report 5078697-5 (Version None)
Quarter: 2006Q3

REPORT INFORMATION
  Report Type: 
  Country: None (occurrence: None)
  Receive Date: 20060724
  Receipt Date: 20060403
  Transmission Date: 20061208
  Serious: Yes (Other)
  Sender: FDA-Public Use
  Company Number: 2005027395

PATIENT
  Age: 18 Year
  Sex: Female
  Weight: 58.9676 kg

DRUGS (2)
  1. CLINDAMYCIN HCL [Suspect]
     Indication: TOOTH EXTRACTION
     Dosage: 150 MG (150 MG, 1 IN 1 D), ORAL
     Route: 048
     Dates: start: 20041229, end: 20050108
  2. MEDROL ACETATE [Concomitant]

REACTIONS (3)
  - CLOSTRIDIUM DIFFICILE COLITIS [None]
  - NAUSEA [None]
  - PAIN [None]
